FAERS Safety Report 8319040-5 (Version None)
Quarter: 2012Q2

REPORT INFORMATION
  Report Type: 
  Country: None (occurrence: None)
  Receive Date: 20120427
  Receipt Date: 20120418
  Transmission Date: 20120825
  Serious: Yes (Death)
  Sender: FDA-Public Use
  Company Number: CA-ACTELION-A-US2012-64290

PATIENT

DRUGS (4)
  1. TRACLEER [Suspect]
     Indication: PULMONARY ARTERIAL HYPERTENSION
     Dosage: 62.5 MG, BID
     Route: 048
     Dates: start: 20100906, end: 20101003
  2. TRACLEER [Suspect]
     Dosage: 125 MG, BID
     Route: 048
     Dates: start: 20101004, end: 20101026
  3. AMBRISENTAN [Concomitant]
     Dosage: UNK
     Dates: start: 20101114
  4. SILDENAFIL [Concomitant]
     Dosage: UNK
     Dates: start: 20101114

REACTIONS (1)
  - RESPIRATORY FAILURE [None]
